FAERS Safety Report 6969199-7 (Version None)
Quarter: 2010Q3

REPORT INFORMATION
  Report Type: 
  Country: None (occurrence: None)
  Receive Date: 20100907
  Receipt Date: 20100906
  Transmission Date: 20110219
  Serious: Yes (Death, Hospitalization, Other)
  Sender: FDA-Public Use
  Company Number: PHFR2010GB01967

PATIENT
  Sex: Male

DRUGS (2)
  1. CLOZARIL [Suspect]
     Indication: SCHIZOPHRENIA
     Dosage: 200 MG, BID
     Route: 048
     Dates: start: 20070815
  2. CLOZARIL [Suspect]
     Dosage: 150 MG, BID
     Route: 048

REACTIONS (12)
  - ABDOMINAL DISCOMFORT [None]
  - ANTIPSYCHOTIC DRUG LEVEL INCREASED [None]
  - CARDIAC ARREST [None]
  - CHOLELITHIASIS [None]
  - FALL [None]
  - GAIT DISTURBANCE [None]
  - HEPATOMEGALY [None]
  - JOINT INJURY [None]
  - MALAISE [None]
  - PANCREATITIS [None]
  - VOMITING [None]
  - WALKING AID USER [None]
